FAERS Safety Report 4497196-2 (Version None)
Quarter: 2004Q3

REPORT INFORMATION
  Report Type: 
  Country: None (occurrence: None)
  Receive Date: 20040927
  Receipt Date: 20040528
  Transmission Date: 20050211
  Serious: No
  Sender: FDA-Public Use
  Company Number: USA040568824

PATIENT
  Age: 64 Year
  Sex: Male

DRUGS (1)
  1. STRATTERA [Suspect]
     Dosage: 40 MG
     Dates: start: 20040524, end: 20040526

REACTIONS (3)
  - DYSPHORIA [None]
  - INSOMNIA [None]
  - URINARY HESITATION [None]
